FAERS Safety Report 19091025 (Version 2)
Quarter: 2021Q2

REPORT INFORMATION
  Report Type: Spontaneous
  Country: FR (occurrence: FR)
  Receive Date: 20210405
  Receipt Date: 20210604
  Transmission Date: 20210717
  Serious: Yes (Life-Threatening, Hospitalization)
  Sender: FDA-Public Use
  Company Number: FR-JNJFOC-20210357309

PATIENT
  Age: 17 Year
  Sex: Male

DRUGS (4)
  1. LOXAPINE. [Suspect]
     Active Substance: LOXAPINE
     Indication: BIPOLAR I DISORDER
  2. LOXAPINE. [Suspect]
     Active Substance: LOXAPINE
     Indication: BIPOLAR I DISORDER
     Dosage: 50MG IN 2DOSES AT H0 AND H12
     Route: 030
  3. LOXAPINE. [Suspect]
     Active Substance: LOXAPINE
     Indication: BIPOLAR I DISORDER
     Route: 048
  4. RISPERDAL [Suspect]
     Active Substance: RISPERIDONE
     Indication: BIPOLAR DISORDER
     Dosage: .25 MILLIGRAM DAILY; SINGLE DOSE
     Route: 065

REACTIONS (7)
  - Hypothyroidism [Unknown]
  - Hypoxia [Unknown]
  - Acute pulmonary oedema [Unknown]
  - Respiratory distress [Unknown]
  - Neuroleptic malignant syndrome [Unknown]
  - Rhabdomyolysis [Unknown]
  - Inflammation [Unknown]
